FAERS Safety Report 7184186-4 (Version None)
Quarter: 2010Q4

REPORT INFORMATION
  Report Type: 
  Country: None (occurrence: None)
  Receive Date: 20101123
  Receipt Date: 20100811
  Transmission Date: 20110411
  Serious: No
  Sender: FDA-Public Use
  Company Number: 014315

PATIENT
  Sex: Female
  Weight: 118 kg

DRUGS (8)
  1. CIMZIA [Suspect]
     Indication: CROHN'S DISEASE
     Dosage: (200 MG 1X/MONTH SUBCUTANEOUS)
     Route: 058
     Dates: start: 20100101
  2. RELAFEN [Concomitant]
  3. ANALGESICS [Concomitant]
  4. MUSCLE RELAXANTS [Concomitant]
  5. DIURETICS [Concomitant]
  6. CARDIAC THERAPY [Concomitant]
  7. VITAMINS NOS [Concomitant]
  8. IRON [Concomitant]

REACTIONS (3)
  - ANAEMIA [None]
  - DIARRHOEA [None]
  - WEIGHT INCREASED [None]
